FAERS Safety Report 9537852 (Version 3)
Quarter: 2013Q4

REPORT INFORMATION
  Report Type: Spontaneous
  Country: US (occurrence: US)
  Receive Date: 20130919
  Receipt Date: 20131231
  Transmission Date: 20140711
  Serious: Yes (Hospitalization, Other)
  Sender: FDA-Public Use
  Company Number: US-ABBVIE-13P-163-1136762-00

PATIENT
  Age: 29 Year
  Sex: Male
  Weight: 88.53 kg

DRUGS (5)
  1. HUMIRA [Suspect]
     Indication: COLITIS ULCERATIVE
     Dates: start: 201306, end: 20130812
  2. PREDNISONE [Suspect]
     Indication: COLITIS ULCERATIVE
     Dosage: TAPERED DOWN AND OFF MEDICATION
     Dates: end: 2013
  3. ASACOL HD [Concomitant]
     Indication: COLITIS ULCERATIVE
  4. INSULIN [Concomitant]
     Indication: PRODUCT USED FOR UNKNOWN INDICATION
     Dosage: PUMP
  5. DIOVAN HCT [Concomitant]
     Indication: PRODUCT USED FOR UNKNOWN INDICATION

REACTIONS (10)
  - Cardiomyopathy [Recovered/Resolved]
  - Oedema peripheral [Recovered/Resolved]
  - Oedema peripheral [Recovered/Resolved]
  - Ejection fraction abnormal [Recovering/Resolving]
  - Left ventricular failure [Recovering/Resolving]
  - Colitis ulcerative [Unknown]
  - Renal failure acute [Unknown]
  - Oedema [Unknown]
  - Dyspnoea [Unknown]
  - Cardiac failure congestive [Recovering/Resolving]
